FAERS Safety Report 7686591-6 (Version None)
Quarter: 2011Q3

REPORT INFORMATION
  Report Type: 
  Country: None (occurrence: None)
  Receive Date: 20110816
  Receipt Date: 20110805
  Transmission Date: 20111222
  Serious: Yes (Hospitalization, Other)
  Sender: FDA-Public Use
  Company Number: US-MERCK-0708USA03908

PATIENT
  Age: 59 Year
  Sex: Female
  Weight: 40 kg

DRUGS (5)
  1. MEDROL [Suspect]
     Indication: RHEUMATOID ARTHRITIS
     Route: 065
     Dates: start: 19900101
  2. PLAQUENIL [Concomitant]
     Indication: RHEUMATOID ARTHRITIS
     Route: 065
     Dates: start: 19900101
  3. FERREX [Concomitant]
     Route: 065
     Dates: start: 20000101
  4. FOSAMAX [Suspect]
     Route: 048
     Dates: start: 19950101, end: 20010101
  5. FOSAMAX [Suspect]
     Route: 048
     Dates: start: 20010101, end: 20060816

REACTIONS (42)
  - DYSPNOEA [None]
  - RHEUMATOID ARTHRITIS [None]
  - OSTEOMYELITIS [None]
  - HIATUS HERNIA [None]
  - RENAL ARTERY STENOSIS [None]
  - GASTRIC ULCER HAEMORRHAGE [None]
  - ADVERSE DRUG REACTION [None]
  - GASTROINTESTINAL HAEMORRHAGE [None]
  - COLONIC POLYP [None]
  - RESPIRATORY FAILURE [None]
  - INSOMNIA [None]
  - HYPERGLYCAEMIA [None]
  - DRUG HYPERSENSITIVITY [None]
  - BREAST MASS [None]
  - ARTERIAL DISORDER [None]
  - CAROTID ARTERY STENOSIS [None]
  - PEPTIC ULCER [None]
  - WEIGHT DECREASED [None]
  - HYPOKALAEMIA [None]
  - PAIN [None]
  - VENTRICULAR EXTRASYSTOLES [None]
  - CHRONIC OBSTRUCTIVE PULMONARY DISEASE [None]
  - ANAEMIA [None]
  - POSTOPERATIVE ABSCESS [None]
  - ISCHAEMIC CARDIOMYOPATHY [None]
  - OSTEONECROSIS OF JAW [None]
  - PERIPHERAL ISCHAEMIA [None]
  - CORONARY ARTERY DISEASE [None]
  - TRANSIENT ISCHAEMIC ATTACK [None]
  - GASTRITIS [None]
  - FEELING DRUNK [None]
  - IRON DEFICIENCY ANAEMIA [None]
  - RENAL FAILURE ACUTE [None]
  - ACUTE SINUSITIS [None]
  - UPPER RESPIRATORY TRACT INFECTION [None]
  - HEADACHE [None]
  - BLOOD CHLORIDE DECREASED [None]
  - PERIPHERAL VASCULAR DISORDER [None]
  - OEDEMA PERIPHERAL [None]
  - CHRONIC SINUSITIS [None]
  - BLOOD SODIUM DECREASED [None]
  - BLOOD MAGNESIUM DECREASED [None]
